FAERS Safety Report 9063260 (Version 1)
Quarter: 2013Q1

REPORT INFORMATION
  Report Type: Spontaneous
  Country: JP (occurrence: JP)
  Receive Date: 20130213
  Receipt Date: 20130213
  Transmission Date: 20140127
  Serious: Yes (Other)
  Sender: FDA-Public Use
  Company Number: JP-GLAXOSMITHKLINE-B0866284A

PATIENT
  Age: 70 None
  Sex: Male

DRUGS (4)
  1. AVOLVE [Suspect]
     Indication: BENIGN PROSTATIC HYPERPLASIA
     Dosage: .5MG PER DAY
     Route: 048
     Dates: start: 20121121
  2. PARIET [Concomitant]
     Route: 048
     Dates: start: 2010
  3. MARZULENE [Concomitant]
     Route: 048
     Dates: start: 2010
  4. HARNAL [Concomitant]
     Route: 048
     Dates: start: 2010

REACTIONS (2)
  - Gastric ulcer [Not Recovered/Not Resolved]
  - Sensation of foreign body [Unknown]
